FAERS Safety Report 20531676 (Version 5)
Quarter: 2022Q2

REPORT INFORMATION
  Report Type: Spontaneous
  Country: IT (occurrence: IT)
  Receive Date: 20220301
  Receipt Date: 20220608
  Transmission Date: 20220720
  Serious: Yes (Death, Other)
  Sender: FDA-Public Use
  Company Number: IT-CELLTRION INC.-2022IT002431

PATIENT

DRUGS (13)
  1. RITUXIMAB [Suspect]
     Active Substance: RITUXIMAB
     Indication: Hairy cell leukaemia
     Dosage: 375 MG/M2, DAY 1 (DOSE FORM: UNKNOWN)
     Route: 065
  2. RITUXIMAB [Suspect]
     Active Substance: RITUXIMAB
     Dosage: 375 MG/M2, DAY 15 (DOSE FORM: UNKNOWN)
     Route: 065
  3. RITUXIMAB [Suspect]
     Active Substance: RITUXIMAB
     Dosage: UNK
  4. INTERFERON [Suspect]
     Active Substance: INTERFERON
     Indication: Hairy cell leukaemia
     Dosage: REPEATED FOUR TIMES
     Route: 065
  5. LEUSTATIN [Suspect]
     Active Substance: CLADRIBINE
     Indication: Hairy cell leukaemia
     Dosage: REPEATED THREE TIMES
  6. VEMURAFENIB [Suspect]
     Active Substance: VEMURAFENIB
     Indication: Hairy cell leukaemia
     Dosage: 960 MILLIGRAM, BID
  7. VEMURAFENIB [Suspect]
     Active Substance: VEMURAFENIB
     Dosage: MONOTHERAPY FOR 14 WEEKS; DOSE FORM: UNKNOWN
     Route: 065
  8. VEMURAFENIB [Suspect]
     Active Substance: VEMURAFENIB
     Dosage: 480 MG, BID FOR 2 WEEKS (DOSE FORM: UNKNOWN)
     Route: 065
  9. VEMURAFENIB [Suspect]
     Active Substance: VEMURAFENIB
     Dosage: 720 MG, BID (DELIVERED FOR 12 WEEKS) (DOSE FORM: UNKNOWN)
     Route: 065
  10. VEMURAFENIB [Suspect]
     Active Substance: VEMURAFENIB
     Dosage: 1920 MG, QD (DOSE FORM: UNKNOWN)
     Route: 065
  11. VEMURAFENIB [Suspect]
     Active Substance: VEMURAFENIB
     Dosage: 240 MG, BID ALTERNATING 4 WEEKS ON WITH 4 WEEKS OFF-THERAPY (DOSE FORM: UNKNOWN)
     Route: 065
  12. VEMURAFENIB [Suspect]
     Active Substance: VEMURAFENIB
     Dosage: PHASE-2 TRIAL OF VEMURAFENIB 8 WEEKS (DOSE FORM: UNKNOWN)
     Route: 065
  13. PENTOSTATIN [Suspect]
     Active Substance: PENTOSTATIN
     Indication: Hairy cell leukaemia
     Dosage: DOSE FORM: UNKNOWN
     Route: 065

REACTIONS (8)
  - Disease progression [Fatal]
  - Myelodysplastic syndrome [Fatal]
  - Hairy cell leukaemia recurrent [Fatal]
  - Liver function test abnormal [Fatal]
  - Arthralgia [Fatal]
  - Skin papilloma [Fatal]
  - Infusion related reaction [Fatal]
  - Off label use [Unknown]

NARRATIVE: CASE EVENT DATE: 20150101
